FAERS Safety Report 4727070-5 (Version None)
Quarter: 2005Q3

REPORT INFORMATION
  Report Type: 
  Country: None (occurrence: None)
  Receive Date: 20050726
  Receipt Date: 20050726
  Transmission Date: 20060218
  Serious: Yes (Hospitalization)
  Sender: FDA-Public Use
  Company Number: None

PATIENT
  Age: 55 Year
  Sex: Male
  Weight: 142.9 kg

DRUGS (18)
  1. LEVOFLOXACIN [Suspect]
  2. COLESTIPOL HCL [Concomitant]
  3. SILDENAFIL CITRATE [Concomitant]
  4. AMITRIPTYLINE HCL [Concomitant]
  5. SALSALATE [Concomitant]
  6. MULTI-VITAMIN [Concomitant]
  7. ATRAC-TAIN [Concomitant]
  8. TRAMADOL HCL [Concomitant]
  9. CLOTRIMAZOLE [Concomitant]
  10. NAPROXEN [Concomitant]
  11. ACETAMINOPHEN [Concomitant]
  12. SULFAMETHOXAZOLE AND TRIMETHOPRIM DOUBLE STRENGTH [Concomitant]
  13. HYDROCHLOROTHIAZIDE [Concomitant]
  14. ETODOLAC [Concomitant]
  15. MUPIROCIN CALCIUM [Concomitant]
  16. CETACAINE [Concomitant]
  17. ERYTHROMYCIN [Concomitant]
  18. KETOROLAC TROMETHAMINE [Concomitant]

REACTIONS (1)
  - MUCOSAL INFLAMMATION [None]
